FAERS Safety Report 9170686 (Version 1)
Quarter: 2013Q1

REPORT INFORMATION
  Report Type: Report from Study
  Country: UA (occurrence: UA)
  Receive Date: 20130319
  Receipt Date: 20130319
  Transmission Date: 20140127
  Serious: Yes (Hospitalization, Other)
  Sender: FDA-Public Use
  Company Number: UA-JNJFOC-20111210377

PATIENT
  Age: 48 Year
  Sex: Female
  Weight: 92.1 kg

DRUGS (10)
  1. GOLIMUMAB [Suspect]
     Indication: RHEUMATOID ARTHRITIS
     Route: 042
     Dates: start: 20110928
  2. GOLIMUMAB [Suspect]
     Indication: RHEUMATOID ARTHRITIS
     Route: 042
     Dates: start: 20100930
  3. LEVOTHYROXINE SODIUM [Concomitant]
     Indication: HYPOTHYROIDISM
     Route: 048
     Dates: start: 20090112
  4. FERROUS SULFATE [Concomitant]
     Route: 048
     Dates: start: 20110420
  5. METHYLPREDNISOLONE [Concomitant]
     Indication: RHEUMATOID ARTHRITIS
     Route: 048
     Dates: start: 20100416
  6. NIMESULIDE [Concomitant]
     Indication: RHEUMATOID ARTHRITIS
     Route: 048
     Dates: start: 20100416
  7. ACIDUM FOLICUM [Concomitant]
     Indication: RHEUMATOID ARTHRITIS
     Route: 048
  8. STRONTIUM RANELATE [Concomitant]
     Indication: RHEUMATOID ARTHRITIS
     Route: 048
  9. AMOKSIKLAV [Concomitant]
     Route: 048
     Dates: start: 20111114
  10. AMBROXOL [Concomitant]
     Route: 048
     Dates: start: 20111114

REACTIONS (2)
  - Lobar pneumonia [Recovered/Resolved]
  - Pleurisy [Recovered/Resolved]
